FAERS Safety Report 10797488 (Version 4)
Quarter: 2015Q4

REPORT INFORMATION
  Report Type: Spontaneous
  Country: US (occurrence: US)
  Receive Date: 20150216
  Receipt Date: 20151119
  Transmission Date: 20160304
  Serious: Yes (Life-Threatening, Hospitalization, Disabling, Other)
  Sender: FDA-Public Use
  Company Number: US-BAYER-2015-021139

PATIENT
  Age: 30 Year
  Sex: Female
  Weight: 45.35 kg

DRUGS (1)
  1. MIRENA [Suspect]
     Active Substance: LEVONORGESTREL
     Indication: CONTRACEPTION
     Dosage: 20 MCG/24HR, CONT
     Route: 015
     Dates: start: 20111228, end: 20130822

REACTIONS (15)
  - Device dislocation [None]
  - Amenorrhoea [None]
  - Pelvic pain [None]
  - Injury [None]
  - Device use error [None]
  - Haemorrhage [None]
  - Vaginal haemorrhage [None]
  - Anxiety [None]
  - Balance disorder [None]
  - Procedural pain [None]
  - General physical health deterioration [None]
  - Anhedonia [None]
  - Device dislocation [None]
  - Device difficult to use [None]
  - Peritoneal adhesions [None]

NARRATIVE: CASE EVENT DATE: 201308
